FAERS Safety Report 5237704-7 (Version None)
Quarter: 2007Q1

REPORT INFORMATION
  Report Type: 
  Country: None (occurrence: None)
  Receive Date: 20070214
  Receipt Date: 20070202
  Transmission Date: 20070707
  Serious: Yes (Hospitalization)
  Sender: FDA-Public Use
  Company Number: IE-AMGEN-US070833

PATIENT
  Sex: Female

DRUGS (6)
  1. ENBREL [Suspect]
     Indication: ARTHRITIS
     Route: 058
     Dates: start: 20031016, end: 20031201
  2. METHOTREXATE [Suspect]
  3. DELTACORTRIL [Concomitant]
  4. FOLIC ACID [Concomitant]
  5. CALCIUM CARBONATE [Concomitant]
  6. REMICADE [Concomitant]
     Dates: start: 20000210, end: 20030904

REACTIONS (2)
  - ARTHRITIS [None]
  - ENCEPHALITIS HERPES [None]
